FAERS Safety Report 5242726-6 (Version None)
Quarter: 2007Q1

REPORT INFORMATION
  Report Type: 
  Country: None (occurrence: None)
  Receive Date: 20070221
  Receipt Date: 20070216
  Transmission Date: 20070707
  Serious: Yes (Death)
  Sender: FDA-Public Use
  Company Number: JP-GLAXOSMITHKLINE-B0458600A

PATIENT
  Sex: Male

DRUGS (6)
  1. REQUIP [Suspect]
     Indication: PARKINSON'S DISEASE
     Dosage: 3MG THREE TIMES PER DAY
     Route: 048
  2. MADOPAR [Concomitant]
     Route: 048
  3. UNKNOWN MEDICATION [Concomitant]
     Route: 048
  4. BI-SIFROL [Concomitant]
     Route: 048
  5. HARNAL [Concomitant]
     Route: 048
  6. FP [Concomitant]
     Route: 048

REACTIONS (2)
  - DYSPHAGIA [None]
  - FEELING HOT [None]
